FAERS Safety Report 6253924-7 (Version None)
Quarter: 2009Q3

REPORT INFORMATION
  Report Type: 
  Country: None (occurrence: None)
  Receive Date: 20090701
  Receipt Date: 20090701
  Transmission Date: 20100115
  Serious: Yes (Hospitalization)
  Sender: FDA-Public Use
  Company Number: None

PATIENT
  Age: 50 Year
  Sex: Female
  Weight: 87.5 kg

DRUGS (6)
  1. RELENZA [Suspect]
     Indication: EXPOSURE TO COMMUNICABLE DISEASE
     Dosage: 2 INHALED Q DAY 047 ORAL
     Route: 048
     Dates: start: 20090611, end: 20090615
  2. ZONISAMIDE [Concomitant]
  3. TREXAMET [Concomitant]
  4. ASPIRIN [Concomitant]
  5. SUMATRIPTAN SUCCINATE [Concomitant]
  6. ALLEEVE [Concomitant]

REACTIONS (2)
  - CHEST DISCOMFORT [None]
  - HEART RATE IRREGULAR [None]
